FAERS Safety Report 25319524 (Version 1)
Quarter: 2025Q2

REPORT INFORMATION
  Report Type: Spontaneous
  Country: GB (occurrence: GB)
  Receive Date: 20250515
  Receipt Date: 20250515
  Transmission Date: 20250717
  Serious: Yes (Hospitalization)
  Sender: DR REDDYS
  Company Number: None

PATIENT
  Age: 73 Year
  Sex: Male

DRUGS (1)
  1. NICOTINE [Suspect]
     Active Substance: NICOTINE
     Indication: Product used for unknown indication

REACTIONS (1)
  - Rash [Unknown]
